FAERS Safety Report 5765540-1 (Version None)
Quarter: 2008Q2

REPORT INFORMATION
  Report Type: 
  Country: None (occurrence: None)
  Receive Date: 20080611
  Receipt Date: 20080605
  Transmission Date: 20081010
  Serious: Yes (Hospitalization)
  Sender: FDA-Public Use
  Company Number: CM-MERCK-0806USA00958

PATIENT
  Age: 23 Year
  Sex: Male

DRUGS (1)
  1. STROMECTOL [Suspect]
     Indication: ONCHOCERCIASIS
     Route: 065
     Dates: start: 20080515

REACTIONS (5)
  - ASTHENIA [None]
  - COMA [None]
  - DIARRHOEA [None]
  - HEADACHE [None]
  - SOMNOLENCE [None]
